FAERS Safety Report 12772230 (Version 1)
Quarter: 2016Q3

REPORT INFORMATION
  Report Type: Spontaneous
  Country: IE (occurrence: IE)
  Receive Date: 20160922
  Receipt Date: 20160922
  Transmission Date: 20161109
  Serious: Yes (Hospitalization)
  Sender: FDA-Public Use
  Company Number: IE-TEVA-692631ISR

PATIENT
  Age: 63 Year
  Sex: Female

DRUGS (1)
  1. RAMIPRIL TEVA PHARMA [Suspect]
     Active Substance: RAMIPRIL
     Indication: RENAL DISORDER
     Dosage: 2.5 MILLIGRAM DAILY;
     Route: 048
     Dates: start: 2015, end: 2015

REACTIONS (3)
  - Back pain [Recovered/Resolved]
  - Pain [Recovered/Resolved]
  - Chest pain [Recovered/Resolved]

NARRATIVE: CASE EVENT DATE: 2015
